FAERS Safety Report 20846707 (Version 1)
Quarter: 2022Q2

REPORT INFORMATION
  Report Type: Spontaneous
  Country: NL (occurrence: NL)
  Receive Date: 20220519
  Receipt Date: 20220519
  Transmission Date: 20220721
  Serious: Yes (Other)
  Sender: FDA-Public Use
  Company Number: NL-LRB-00806177

PATIENT
  Sex: Female
  Weight: 55 kg

DRUGS (2)
  1. ISOTRETINOIN [Suspect]
     Active Substance: ISOTRETINOIN
     Indication: Acne
     Dosage: 30 MILLIGRAM, DAILY 1X DAILY 3 PIECES
     Route: 065
     Dates: start: 20210701
  2. SERTRALINE TABLET  50MG / Brand name not specifiedSERTRALINE TABLET... [Concomitant]
     Indication: Product used for unknown indication
     Dosage: TABLET, 50 MG (MILLIGRAM) ()
     Route: 065

REACTIONS (2)
  - Suicidal ideation [Recovering/Resolving]
  - Depressed mood [Recovering/Resolving]
